FAERS Safety Report 5314477-0 (Version None)
Quarter: 2007Q2

REPORT INFORMATION
  Report Type: 
  Country: None (occurrence: None)
  Receive Date: 20070430
  Receipt Date: 20070430
  Transmission Date: 20071010
  Serious: Yes (Other)
  Sender: FDA-Public Use
  Company Number: None

PATIENT
  Age: 28 Year
  Sex: Female
  Weight: 44.4525 kg

DRUGS (2)
  1. LUPRON [Suspect]
     Indication: ECTOPIC PREGNANCY
     Dosage: EVERY 28 / 6 MONTH
     Dates: start: 20050216, end: 20050716
  2. LUPRON [Suspect]
     Indication: ENDOMETRIOSIS
     Dosage: EVERY 28 / 6 MONTH
     Dates: start: 20050216, end: 20050716

REACTIONS (7)
  - ANXIETY DISORDER [None]
  - BANKRUPTCY [None]
  - DEPRESSION [None]
  - DIVORCED [None]
  - MOOD SWINGS [None]
  - OBSESSIVE-COMPULSIVE DISORDER [None]
  - THINKING ABNORMAL [None]
